FAERS Safety Report 12689613 (Version 14)
Quarter: 2022Q3

REPORT INFORMATION
  Report Type: Report from Study
  Country: JP (occurrence: JP)
  Receive Date: 20160826
  Receipt Date: 20220817
  Transmission Date: 20221027
  Serious: Yes (Life-Threatening, Hospitalization, Other)
  Sender: FDA-Public Use
  Company Number: JP-VIIVHC-JP2016JPN122087AA

PATIENT

DRUGS (45)
  1. RETROVIR [Suspect]
     Active Substance: ZIDOVUDINE
     Indication: HIV infection
     Dosage: 100 MG, QID
     Route: 048
     Dates: start: 19960926, end: 19991013
  2. RETROVIR [Suspect]
     Active Substance: ZIDOVUDINE
     Dosage: 400 MG, UNKNOWN NUMBER OF DIVIDED DOSES
     Route: 048
     Dates: start: 20060329, end: 20150301
  3. RETROVIR [Suspect]
     Active Substance: ZIDOVUDINE
     Dosage: 400 MG, UNKNOWN NUMBER OF DIVIDED DOSES
     Route: 048
     Dates: start: 20150303, end: 20150428
  4. DOLUTEGRAVIR [Suspect]
     Active Substance: DOLUTEGRAVIR
     Indication: HIV infection
     Dosage: 50 MG, 1D
     Route: 048
     Dates: start: 20150514
  5. ISENTRESS [Suspect]
     Active Substance: RALTEGRAVIR POTASSIUM
     Indication: HIV infection
     Dosage: 800 MG, UNK
     Route: 048
     Dates: start: 20120523, end: 20150301
  6. ISENTRESS [Suspect]
     Active Substance: RALTEGRAVIR POTASSIUM
     Dosage: 800 UNK, UNK
     Route: 048
     Dates: start: 20150303, end: 20150513
  7. TRUVADA [Suspect]
     Active Substance: EMTRICITABINE\TENOFOVIR DISOPROXIL FUMARATE
     Indication: HIV infection
     Dosage: 1 DF, UNK
     Route: 048
     Dates: start: 20060329, end: 20150301
  8. VIREAD [Suspect]
     Active Substance: TENOFOVIR DISOPROXIL FUMARATE
     Indication: HIV infection
     Dosage: 300 MG, 1D
     Route: 048
     Dates: start: 20050815, end: 20060329
  9. VIREAD [Suspect]
     Active Substance: TENOFOVIR DISOPROXIL FUMARATE
     Dosage: 300 MG, UNK
     Route: 048
     Dates: start: 20150422
  10. EPIVIR [Concomitant]
     Active Substance: LAMIVUDINE
     Indication: HIV infection
     Dosage: 150 MG, BID
     Dates: start: 19960926, end: 19991010
  11. EPIVIR [Concomitant]
     Active Substance: LAMIVUDINE
     Dosage: 50 MG, QD
     Dates: start: 20150303, end: 20150317
  12. EPIVIR [Concomitant]
     Active Substance: LAMIVUDINE
     Dosage: 150 MG, QD
     Dates: start: 20150318, end: 20150326
  13. EPIVIR [Concomitant]
     Active Substance: LAMIVUDINE
     Dosage: 300 MG, QD
     Dates: start: 20150327, end: 20150407
  14. EPZICOM [Concomitant]
     Active Substance: ABACAVIR SULFATE\LAMIVUDINE
     Indication: HIV infection
     Dosage: 1 DF, QD
     Dates: start: 20150408, end: 20150421
  15. ZIAGEN [Concomitant]
     Active Substance: ABACAVIR SULFATE
     Indication: HIV infection
     Dosage: 300 MG, BID
     Dates: start: 20150303, end: 20150407
  16. EDURANT [Concomitant]
     Active Substance: RILPIVIRINE HYDROCHLORIDE
     Indication: HIV infection
     Dosage: 25 MG, 1D
     Route: 048
     Dates: start: 20150429
  17. SERTRALINE HYDROCHLORIDE [Concomitant]
     Active Substance: SERTRALINE HYDROCHLORIDE
     Indication: Depression
     Dosage: 100 MG, QD
     Dates: end: 20210720
  18. SERTRALINE HYDROCHLORIDE [Concomitant]
     Active Substance: SERTRALINE HYDROCHLORIDE
     Indication: Insomnia
  19. BROTIZOLAM [Concomitant]
     Active Substance: BROTIZOLAM
     Indication: Depression
     Dosage: 0.25 MG, QD
     Dates: end: 20150429
  20. BROTIZOLAM [Concomitant]
     Active Substance: BROTIZOLAM
     Indication: Insomnia
  21. LUNESTA [Concomitant]
     Active Substance: ESZOPICLONE
     Indication: Depression
     Dosage: 3 MG, QD
     Dates: end: 20150413
  22. LUNESTA [Concomitant]
     Active Substance: ESZOPICLONE
     Indication: Insomnia
  23. NITRAZEPAM [Concomitant]
     Active Substance: NITRAZEPAM
     Indication: Depression
     Dosage: 10 MG, QD
  24. NITRAZEPAM [Concomitant]
     Active Substance: NITRAZEPAM
     Indication: Insomnia
  25. REFLEX [Concomitant]
     Active Substance: MIRTAZAPINE
     Indication: Depression
     Dosage: 30 MG, QD
     Dates: end: 20191126
  26. REFLEX [Concomitant]
     Active Substance: MIRTAZAPINE
     Indication: Insomnia
  27. CONSTAN [Concomitant]
     Indication: Depression
     Dosage: 0.4 MG, QD
     Dates: end: 20150721
  28. CONSTAN [Concomitant]
     Indication: Insomnia
  29. ZOPICLONE [Concomitant]
     Active Substance: ZOPICLONE
     Indication: Depression
     Dosage: 10 MG, QD
     Dates: start: 20150414, end: 20160322
  30. ZOPICLONE [Concomitant]
     Active Substance: ZOPICLONE
     Indication: Insomnia
  31. ZOLPIDEM TARTRATE [Concomitant]
     Active Substance: ZOLPIDEM TARTRATE
     Indication: Depression
     Dosage: 5 MG, QD
     Dates: start: 20150430, end: 20151124
  32. ZOLPIDEM TARTRATE [Concomitant]
     Active Substance: ZOLPIDEM TARTRATE
     Indication: Insomnia
     Dosage: UNK
     Dates: start: 20160427, end: 20201222
  33. DESYREL [Concomitant]
     Active Substance: TRAZODONE HYDROCHLORIDE
     Indication: Depression
     Dosage: 25 MG, BID
     Dates: start: 20150527, end: 20150721
  34. DESYREL [Concomitant]
     Active Substance: TRAZODONE HYDROCHLORIDE
     Indication: Insomnia
  35. ROZEREM [Concomitant]
     Active Substance: RAMELTEON
     Indication: Depression
     Dosage: 8 MG, QD
     Dates: start: 20150722, end: 20190827
  36. ROZEREM [Concomitant]
     Active Substance: RAMELTEON
     Indication: Insomnia
  37. FLUNITRAZEPAM [Concomitant]
     Active Substance: FLUNITRAZEPAM
     Indication: Depression
     Dosage: 2 MG, QD
     Dates: start: 20151125, end: 20160223
  38. FLUNITRAZEPAM [Concomitant]
     Active Substance: FLUNITRAZEPAM
     Indication: Insomnia
  39. BELSOMRA [Concomitant]
     Active Substance: SUVOREXANT
     Indication: Depression
     Dosage: 15 MG, QD
     Dates: start: 20160323
  40. BELSOMRA [Concomitant]
     Active Substance: SUVOREXANT
     Indication: Insomnia
  41. SEROQUEL [Concomitant]
     Active Substance: QUETIAPINE FUMARATE
     Indication: Depressed mood
     Dosage: 150 MG, QD
     Dates: start: 20140301, end: 20150107
  42. ETIZOLAM [Concomitant]
     Active Substance: ETIZOLAM
     Dosage: UNK
     Dates: start: 20180130
  43. TRYPTANOL (AMITRIPTYLINE HYDROCHLORIDE) [Concomitant]
     Dosage: UNK
     Dates: start: 20191127
  44. CHLORPROMAZINE [Concomitant]
     Active Substance: CHLORPROMAZINE
     Dosage: UNK
     Dates: start: 20201223
  45. CYMBALTA [Concomitant]
     Active Substance: DULOXETINE HYDROCHLORIDE
     Dosage: UNK
     Dates: start: 20210721, end: 20211215

REACTIONS (5)
  - Rhabdomyolysis [Recovered/Resolved with Sequelae]
  - Neuropathy peripheral [Not Recovered/Not Resolved]
  - Acute kidney injury [Recovered/Resolved]
  - Hypertriglyceridaemia [Not Recovered/Not Resolved]
  - Anal polyp [Recovered/Resolved]

NARRATIVE: CASE EVENT DATE: 20110824
